FAERS Safety Report 19076487 (Version 3)
Quarter: 2021Q3

REPORT INFORMATION
  Report Type: Report from Study
  Country: US (occurrence: US)
  Receive Date: 20210331
  Receipt Date: 20210707
  Transmission Date: 20211014
  Serious: No
  Sender: FDA-Public Use
  Company Number: NVSC2021US069379

PATIENT
  Age: 45 Year
  Sex: Male

DRUGS (1)
  1. COSENTYX [Suspect]
     Active Substance: SECUKINUMAB
     Indication: PSORIASIS
     Dosage: 150 MG, QMO
     Route: 058
     Dates: start: 202007

REACTIONS (6)
  - Skin ulcer [Unknown]
  - Sleep disorder [Unknown]
  - Product dose omission issue [Unknown]
  - Skin haemorrhage [Unknown]
  - Symptom recurrence [Unknown]
  - Pain [Unknown]

NARRATIVE: CASE EVENT DATE: 202010
